FAERS Safety Report 17529940 (Version 4)
Quarter: 2020Q1

REPORT INFORMATION
  Report Type: Spontaneous
  Country: RU (occurrence: RU)
  Receive Date: 20200312
  Receipt Date: 20200330
  Transmission Date: 20200409
  Serious: Yes (Hospitalization)
  Sender: FDA-Public Use
  Company Number: RU-TEVA-2020-RU-1196716

PATIENT
  Age: 51 Year
  Sex: Male

DRUGS (3)
  1. 5-FLUOROURACIL [Suspect]
     Active Substance: FLUOROURACIL
     Indication: ADENOCARCINOMA GASTRIC
     Dosage: FOR 4 DAYS, EVERY 4 WEEKS
     Route: 050
  2. PROMEDOL [Suspect]
     Active Substance: TRIMEPERIDINE
     Indication: ANALGESIC THERAPY
     Route: 065
  3. CISPLATIN. [Suspect]
     Active Substance: CISPLATIN
     Indication: ADENOCARCINOMA GASTRIC
     Dosage: ON THE FIRST DAY
     Route: 065

REACTIONS (5)
  - Dysphoria [Unknown]
  - Haematotoxicity [Unknown]
  - Metabolic acidosis [Unknown]
  - Lactic acidosis [Unknown]
  - Encephalopathy [Recovering/Resolving]
